FAERS Safety Report 8060241-1 (Version None)
Quarter: 2012Q1

REPORT INFORMATION
  Report Type: 
  Country: None (occurrence: None)
  Receive Date: 20120120
  Receipt Date: 20120115
  Transmission Date: 20120608
  Serious: Yes (Hospitalization)
  Sender: FDA-Public Use
  Company Number: US-ABBOTT-12P-163-0894532-00

PATIENT
  Age: 48 Year
  Sex: Female

DRUGS (10)
  1. HUMIRA [Suspect]
     Indication: CROHN'S DISEASE
     Dosage: LOADING DOSE
     Dates: start: 20120104
  2. FOSAMAX [Concomitant]
     Indication: OSTEOPOROSIS
  3. ALDACTONE [Concomitant]
     Indication: HYPERTENSION
  4. FLEXERIL [Concomitant]
     Indication: MYALGIA
  5. LYRICA [Concomitant]
     Indication: FIBROMYALGIA
     Dosage: 75MG (INCREASED DOSE) QD
  6. LORTAB [Concomitant]
     Indication: PAIN
     Dosage: 1 Q 6 HOURS PRN
  7. NEXIUM [Concomitant]
     Indication: GASTROOESOPHAGEAL REFLUX DISEASE
  8. IMURAN [Concomitant]
     Indication: CROHN'S DISEASE
  9. PREDNISONE [Concomitant]
     Indication: INFLAMMATION
  10. REQUIP [Concomitant]
     Indication: RESTLESS LEGS SYNDROME

REACTIONS (4)
  - UNEVALUABLE EVENT [None]
  - MUSCLE SPASMS [None]
  - PAIN IN EXTREMITY [None]
  - SKIN DISCOLOURATION [None]
